FAERS Safety Report 8695099 (Version 2)
Quarter: 2013Q4

REPORT INFORMATION
  Report Type: Spontaneous
  Country: US (occurrence: US)
  Receive Date: 20120731
  Receipt Date: 20131106
  Transmission Date: 20140711
  Serious: Yes (Other)
  Sender: FDA-Public Use
  Company Number: US-009507513-1207USA010363

PATIENT
  Sex: 0

DRUGS (12)
  1. ZOCOR [Suspect]
     Dosage: UNK UNK, QD
     Route: 048
  2. ZESTORETIC [Concomitant]
     Dosage: 1 DF, BID
  3. CELEXA [Concomitant]
     Dosage: 0.5 DF, QD
  4. ADALAT [Concomitant]
     Dosage: 30 MG, QD
  5. NEXIUM [Concomitant]
     Dosage: 20 MG, QD
  6. IMODIUM [Suspect]
     Dosage: UNK, PRN
  7. ALLOPURINOL [Concomitant]
     Dosage: 300 MG, QD
  8. ORIGIN CO Q-10 [Concomitant]
  9. JANUVIA [Concomitant]
     Dosage: 200 MG, QD
  10. GLUCOVANCE [Concomitant]
     Dosage: 2 DF, BID
  11. TOPROL XL TABLETS [Concomitant]
     Dosage: 1 DF, UNK
  12. LIPITOR [Suspect]
     Dosage: 80 MG, QD

REACTIONS (9)
  - Renal impairment [Unknown]
  - Myalgia [Unknown]
  - Low density lipoprotein increased [Unknown]
  - Vascular insufficiency [Unknown]
  - Blood cholesterol [Unknown]
  - Drug intolerance [Unknown]
  - Asthenia [Unknown]
  - Muscular weakness [Unknown]
  - Blood triglycerides increased [Unknown]
